FAERS Safety Report 8816591 (Version 1)
Quarter: 2012Q4

REPORT INFORMATION
  Report Type: Spontaneous
  Country: JP (occurrence: None)
  Receive Date: 20120928
  Receipt Date: 20120928
  Transmission Date: 20130627
  Serious: Yes (Hospitalization, Other)
  Sender: FDA-Public Use
  Company Number: DSJ-2012-15549

PATIENT
  Age: 73 Year
  Sex: Female

DRUGS (10)
  1. OLMETEC [Suspect]
     Route: 048
     Dates: start: 20120712, end: 20120802
  2. FEBURIC [Suspect]
     Dosage: 20 mg (20 mg, 1 in 1 d), per oral
     Route: 048
     Dates: start: 20120721, end: 20120723
  3. TAKEPRON [Suspect]
     Route: 048
     Dates: start: 20120703, end: 20120802
  4. MUCOSOLVAN [Suspect]
     Dosage: 45 mg (15mg, 3 in 1 d), per oral
     Dates: start: 20120724, end: 20120731
  5. AMLODIN [Suspect]
     Route: 048
     Dates: start: 20120712, end: 20120803
  6. BAKTAR [Suspect]
     Dosage: 4 dosage forms, per oral
     Route: 048
     Dates: start: 20120721, end: 20120731
  7. LASIX [Suspect]
     Route: 048
     Dates: start: 20120731, end: 20120802
  8. ADALAT CR [Suspect]
     Route: 048
     Dates: start: 20120731, end: 20120802
  9. DIURETIC [Concomitant]
  10. MEDICON (DEXTROMETHORPHAN HYDROBROMIDE) (DEXTROMETHORPHAN HYDROBROMIDE) [Concomitant]

REACTIONS (2)
  - Drug reaction with eosinophilia and systemic symptoms [None]
  - Renal failure acute [None]
